FAERS Safety Report 13425958 (Version 2)
Quarter: 2017Q2

REPORT INFORMATION
  Report Type: Spontaneous
  Country: US (occurrence: US)
  Receive Date: 20170411
  Receipt Date: 20170508
  Transmission Date: 20170830
  Serious: No
  Sender: FDA-Public Use
  Company Number: US-JNJFOC-20170302656

PATIENT
  Age: 83 Year
  Sex: Female
  Weight: 49.44 kg

DRUGS (2)
  1. FENTANYL. [Suspect]
     Active Substance: FENTANYL
     Indication: GASTROINTESTINAL PAIN
     Dosage: 2 PATCHES OF 12.5 MCG/HR
     Route: 062
     Dates: start: 201702, end: 20170227
  2. FENTANYL. [Suspect]
     Active Substance: FENTANYL
     Indication: GASTROINTESTINAL PAIN
     Route: 062
     Dates: start: 20170208, end: 201702

REACTIONS (8)
  - Disorientation [Recovered/Resolved]
  - Drug administered at inappropriate site [Unknown]
  - Confusional state [Recovered/Resolved]
  - Fatigue [Recovered/Resolved]
  - Drug ineffective [Unknown]
  - Initial insomnia [Unknown]
  - Feeling abnormal [Recovered/Resolved]
  - Dizziness [Recovered/Resolved]

NARRATIVE: CASE EVENT DATE: 201702
